FAERS Safety Report 18424449 (Version 1)
Quarter: 2020Q4

REPORT INFORMATION
  Report Type: Report from Study
  Country: None (occurrence: US)
  Receive Date: 20201026
  Receipt Date: 20201026
  Transmission Date: 20210114
  Serious: Yes (Other)
  Sender: FDA-Public Use
  Company Number: US-ABBVIE-20K-163-3572139-00

PATIENT
  Sex: Male

DRUGS (1)
  1. HUMIRA [Suspect]
     Active Substance: ADALIMUMAB
     Indication: RHEUMATOID ARTHRITIS
     Route: 058

REACTIONS (5)
  - Loss of consciousness [Unknown]
  - Thyroid disorder [Unknown]
  - Hypertension [Recovering/Resolving]
  - Pulse absent [Unknown]
  - Fall [Unknown]

NARRATIVE: CASE EVENT DATE: 2020
